FAERS Safety Report 10795171 (Version 1)
Quarter: 2015Q1

REPORT INFORMATION
  Report Type: Spontaneous
  Country: US (occurrence: US)
  Receive Date: 20150214
  Receipt Date: 20150214
  Transmission Date: 20150721
  Serious: No
  Sender: FDA-Public Use
  Company Number: US-GLAXOSMITHKLINE-A1081093A

PATIENT

DRUGS (6)
  1. VITAMIN B [Concomitant]
     Active Substance: VITAMIN B
  2. ABILIFY [Concomitant]
     Active Substance: ARIPIPRAZOLE
  3. CARBIDOPA/LEVODOPA TABLETS USP [Suspect]
     Active Substance: CARBIDOPA\LEVODOPA
     Indication: TREMOR
     Route: 048
     Dates: start: 201402
  4. LAMICTAL [Suspect]
     Active Substance: LAMOTRIGINE
     Indication: BIPOLAR II DISORDER
     Route: 048
     Dates: start: 2002
  5. VITAMIN D [Concomitant]
     Active Substance: CHOLECALCIFEROL
  6. SERTRALINE [Concomitant]
     Active Substance: SERTRALINE HYDROCHLORIDE

REACTIONS (6)
  - Drug ineffective [Unknown]
  - Condition aggravated [Unknown]
  - Rash erythematous [Unknown]
  - Tremor [Unknown]
  - Rash papular [Unknown]
  - Somnolence [Unknown]

NARRATIVE: CASE EVENT DATE: 2008
